FAERS Safety Report 12191951 (Version 2)
Quarter: 2016Q2

REPORT INFORMATION
  Report Type: Report from Study
  Country: CZ (occurrence: CZ)
  Receive Date: 20160318
  Receipt Date: 20160406
  Transmission Date: 20160815
  Serious: Yes (Other)
  Sender: FDA-Public Use
  Company Number: CZ-PFIZER INC-2016147396

PATIENT
  Age: 8 Year
  Sex: Female
  Weight: 36 kg

DRUGS (5)
  1. TIMONIL [Suspect]
     Active Substance: CARBAMAZEPINE
     Dosage: 150 MG, 2X/DAY
     Route: 048
     Dates: start: 20151002
  2. TIMONIL [Suspect]
     Active Substance: CARBAMAZEPINE
     Indication: PARTIAL SEIZURES
     Dosage: UNK
     Route: 048
     Dates: start: 201501
  3. TOPAMAX [Suspect]
     Active Substance: TOPIRAMATE
     Dosage: 25 MG, 2X/DAY
     Route: 048
     Dates: start: 20151002
  4. PREGABALIN. [Suspect]
     Active Substance: PREGABALIN
     Indication: PARTIAL SEIZURES
     Dosage: 2.5 MG/KG, UNK
     Route: 048
     Dates: start: 20160121, end: 20160317
  5. TOPAMAX [Suspect]
     Active Substance: TOPIRAMATE
     Indication: PARTIAL SEIZURES
     Dosage: UNK
     Route: 048
     Dates: start: 20150423

REACTIONS (1)
  - Hallucination, visual [Recovered/Resolved]

NARRATIVE: CASE EVENT DATE: 20160224
